FAERS Safety Report 4846861-3 (Version None)
Quarter: 2005Q4

REPORT INFORMATION
  Report Type: 
  Country: None (occurrence: None)
  Receive Date: 20051207
  Receipt Date: 20051010
  Transmission Date: 20060501
  Serious: Yes (Death, Other)
  Sender: FDA-Public Use
  Company Number: US-BOEHRINGER INGELHEIM PHARMACEUTICALS, INC.-2005-BP-18034BP

PATIENT
  Sex: Male

DRUGS (8)
  1. COMBIVENT [Suspect]
     Indication: CHRONIC OBSTRUCTIVE PULMONARY DISEASE
     Route: 055
     Dates: start: 20020101
  2. LIPITOR [Concomitant]
  3. TRIAMTERENE [Concomitant]
  4. NEXIUM [Concomitant]
  5. DILTIAZEM HCL [Concomitant]
  6. FLOMAX [Concomitant]
  7. STARLIX [Concomitant]
  8. PROCHLORPERAZINE [Concomitant]

REACTIONS (4)
  - DYSPNOEA [None]
  - LUNG NEOPLASM MALIGNANT [None]
  - OBSTRUCTIVE AIRWAYS DISORDER [None]
  - PHARMACEUTICAL PRODUCT COMPLAINT [None]
